FAERS Safety Report 5032421-0 (Version None)
Quarter: 2006Q2

REPORT INFORMATION
  Report Type: 
  Country: None (occurrence: None)
  Receive Date: 20060622
  Receipt Date: 20060601
  Transmission Date: 20061013
  Serious: Yes (Other)
  Sender: FDA-Public Use
  Company Number: US-AMGEN-US178081

PATIENT
  Sex: Male

DRUGS (9)
  1. ARANESP [Suspect]
     Indication: RENAL FAILURE CHRONIC
     Route: 058
     Dates: start: 20040801, end: 20060401
  2. IMURAN [Suspect]
     Dates: start: 19890101, end: 20060427
  3. CYCLOSPORINE [Concomitant]
     Dates: start: 19890101
  4. LIPITOR [Concomitant]
  5. PREDNISONE [Concomitant]
     Dates: start: 19890101
  6. INSULIN [Concomitant]
  7. AVANDIA [Concomitant]
  8. IRON [Concomitant]
  9. FOLIC ACID [Concomitant]

REACTIONS (4)
  - ANAEMIA [None]
  - ANTI-ERYTHROPOIETIN ANTIBODY POSITIVE [None]
  - LEUKOPENIA [None]
  - THERAPEUTIC RESPONSE DECREASED [None]
